FAERS Safety Report 5010470-6 (Version None)
Quarter: 2006Q2

REPORT INFORMATION
  Report Type: 
  Country: None (occurrence: None)
  Receive Date: 20060523
  Receipt Date: 20060523
  Transmission Date: 20061013
  Serious: No
  Sender: FDA-Public Use
  Company Number: None

PATIENT
  Age: 80 Year
  Sex: Female
  Weight: 54 kg

DRUGS (1)
  1. LORAZEPAM [Suspect]
     Indication: ANXIETY
     Dosage: 10 MG PO BID
     Route: 048
     Dates: start: 20051213

REACTIONS (8)
  - BLOOD PRESSURE FLUCTUATION [None]
  - DRUG PRESCRIBING ERROR [None]
  - FALL [None]
  - LETHARGY [None]
  - SEDATION [None]
  - SKIN LACERATION [None]
  - SPEECH DISORDER [None]
  - UNRESPONSIVE TO VERBAL STIMULI [None]
